FAERS Safety Report 5355018-1 (Version None)
Quarter: 2007Q2

REPORT INFORMATION
  Report Type: 
  Country: None (occurrence: None)
  Receive Date: 20070521
  Receipt Date: 20070405
  Transmission Date: 20071010
  Serious: No
  Sender: FDA-Public Use
  Company Number: WAES 0704USA00939

PATIENT
  Age: 68 Year
  Sex: Female

DRUGS (7)
  1. JANUVIA [Suspect]
     Indication: DIABETES MELLITUS
     Dosage: 100 MG/DAILY/PO
     Route: 048
     Dates: start: 20070315
  2. ACTOS [Concomitant]
  3. CARDIZEM [Concomitant]
  4. GLUCOTROL [Concomitant]
  5. ZOCOR [Concomitant]
  6. LISINOPRIL [Concomitant]
  7. METFORMIN HCL [Concomitant]

REACTIONS (1)
  - BLOOD GLUCOSE DECREASED [None]
